FAERS Safety Report 10909605 (Version 1)
Quarter: 2015Q1

REPORT INFORMATION
  Report Type: Spontaneous
  Country: US (occurrence: US)
  Receive Date: 20150312
  Receipt Date: 20150312
  Transmission Date: 20150721
  Serious: No
  Sender: FDA-Public Use
  Company Number: US-SA-2014SA044829

PATIENT
  Age: 75 Year
  Sex: Male
  Weight: 240 kg

DRUGS (1)
  1. NASACORT ALLERGY 24HR [Suspect]
     Active Substance: TRIAMCINOLONE ACETONIDE
     Indication: HYPERSENSITIVITY
     Dosage: FREQUENCY - 2-3 TIMES
     Route: 065

REACTIONS (6)
  - Dyspnoea [Recovered/Resolved]
  - Lacrimation increased [Recovered/Resolved]
  - Drug ineffective [Unknown]
  - Nasal congestion [Recovered/Resolved]
  - Wheezing [Recovered/Resolved]
  - Sneezing [Recovered/Resolved]
